FAERS Safety Report 24022580 (Version 1)
Quarter: 2024Q2

REPORT INFORMATION
  Report Type: Report from Study
  Country: US (occurrence: US)
  Receive Date: 20240627
  Receipt Date: 20240627
  Transmission Date: 20240716
  Serious: No
  Sender: FDA-Public Use
  Company Number: US-ROCHE-3511819

PATIENT
  Age: 48 Year
  Sex: Female

DRUGS (3)
  1. VABYSMO [Suspect]
     Active Substance: FARICIMAB\FARICIMAB-SVOA
     Indication: Neovascular age-related macular degeneration
     Dosage: AS NEEDED. ANTICIPATED DATE OF TREATMENT: 14/FEB/2024.
     Route: 065
     Dates: start: 202311
  2. VABYSMO [Suspect]
     Active Substance: FARICIMAB\FARICIMAB-SVOA
     Indication: Choroidal neovascularisation
  3. AVASTIN [Suspect]
     Active Substance: BEVACIZUMAB
     Indication: Product used for unknown indication
     Route: 065
     Dates: start: 201809, end: 202311

REACTIONS (2)
  - Therapeutic product effect decreased [Not Recovered/Not Resolved]
  - Retinal oedema [Unknown]

NARRATIVE: CASE EVENT DATE: 20180901
